FAERS Safety Report 19228282 (Version 5)
Quarter: 2023Q4

REPORT INFORMATION
  Report Type: Report from Study
  Country: AU (occurrence: AU)
  Receive Date: 20210506
  Receipt Date: 20231129
  Transmission Date: 20240109
  Serious: Yes (Life-Threatening, Hospitalization, Other)
  Sender: FDA-Public Use
  Company Number: AU-BRISTOL-MYERS SQUIBB COMPANY-BMS-2021-043270

PATIENT
  Age: 68 Year
  Sex: Female
  Weight: 62 kg

DRUGS (10)
  1. IPILIMUMAB [Suspect]
     Active Substance: IPILIMUMAB
     Indication: Renal cell carcinoma
     Dates: start: 20210419, end: 20210419
  2. IPILIMUMAB [Suspect]
     Active Substance: IPILIMUMAB
     Dates: start: 20210115, end: 20210115
  3. PERINDOPRIL [Concomitant]
     Active Substance: PERINDOPRIL
     Indication: Product used for unknown indication
     Route: 048
     Dates: start: 2011
  4. OSTELIN VITAMIN D3 [Concomitant]
     Indication: Product used for unknown indication
     Dosage: 4000 ABSENT 4000 ABSENT
     Route: 048
     Dates: start: 2020
  5. LIVIAL [Concomitant]
     Active Substance: TIBOLONE
     Indication: Product used for unknown indication
     Dosage: .5 ABSENT 0.5 ABSENT
     Route: 048
     Dates: start: 2005
  6. ACETAMINOPHEN [Concomitant]
     Active Substance: ACETAMINOPHEN
     Indication: Product used for unknown indication
     Route: 048
     Dates: start: 202101
  7. MAXIDEX [Concomitant]
     Active Substance: DEXAMETHASONE
     Indication: Product used for unknown indication
     Dosage: 4 ABSENT 4 ABSENT
     Route: 061
     Dates: start: 20210322
  8. LORAZEPAM [Concomitant]
     Active Substance: LORAZEPAM
     Indication: Product used for unknown indication
     Dosage: 0.5 MILLIGRAM
     Route: 048
     Dates: start: 20210503, end: 20210505
  9. LORAZEPAM [Concomitant]
     Active Substance: LORAZEPAM
     Dosage: 0.5 MILLIGRAM
     Route: 048
     Dates: start: 20210503, end: 20210505
  10. LORAZEPAM [Concomitant]
     Active Substance: LORAZEPAM
     Dosage: 0.5 MILLIGRAM
     Route: 048
     Dates: start: 20210503, end: 20210505

REACTIONS (1)
  - Adrenal insufficiency [Recovered/Resolved with Sequelae]

NARRATIVE: CASE EVENT DATE: 20210503
